APPROVED DRUG PRODUCT: ISOSORBIDE DINITRATE
Active Ingredient: ISOSORBIDE DINITRATE
Strength: 40MG
Dosage Form/Route: TABLET, EXTENDED RELEASE;ORAL
Application: A040723 | Product #001
Applicant: IMPAX LABORATORIES INC
Approved: Mar 17, 2008 | RLD: No | RS: No | Type: DISCN